FAERS Safety Report 5158730-2 (Version None)
Quarter: 2006Q4

REPORT INFORMATION
  Report Type: 
  Country: None (occurrence: None)
  Receive Date: 20061128
  Receipt Date: 20061120
  Transmission Date: 20070319
  Serious: Yes (Hospitalization)
  Sender: FDA-Public Use
  Company Number: IL-GLAXOSMITHKLINE-B0447920A

PATIENT
  Age: 43 Year
  Sex: Male

DRUGS (1)
  1. LAMICTAL [Suspect]
     Indication: CONVULSION
     Dosage: 100MG PER DAY
     Route: 048

REACTIONS (23)
  - ALANINE AMINOTRANSFERASE INCREASED [None]
  - ASPARTATE AMINOTRANSFERASE INCREASED [None]
  - BLISTER [None]
  - BLOOD LACTATE DEHYDROGENASE INCREASED [None]
  - CONJUNCTIVITIS INFECTIVE [None]
  - DERMATITIS [None]
  - DRUG HYPERSENSITIVITY [None]
  - DRUG RASH WITH EOSINOPHILIA AND SYSTEMIC SYMPTOMS [None]
  - EPIDERMAL NECROSIS [None]
  - HYPERKERATOSIS [None]
  - LIP EROSION [None]
  - LIP PAIN [None]
  - LIP SWELLING [None]
  - LYMPHOCYTE MORPHOLOGY ABNORMAL [None]
  - MUCOSAL EROSION [None]
  - OEDEMA PERIPHERAL [None]
  - ORAL PAIN [None]
  - PERIORBITAL OEDEMA [None]
  - PYREXIA [None]
  - RASH ERYTHEMATOUS [None]
  - RASH MACULAR [None]
  - STEVENS-JOHNSON SYNDROME [None]
  - STREPTOCOCCAL INFECTION [None]
